FAERS Safety Report 19128910 (Version 1)
Quarter: 2021Q2

REPORT INFORMATION
  Report Type: Spontaneous
  Country: AR (occurrence: AR)
  Receive Date: 20210413
  Receipt Date: 20210413
  Transmission Date: 20210717
  Serious: Yes (Other)
  Sender: FDA-Public Use
  Company Number: AR-PFIZER INC-2021353148

PATIENT
  Age: 71 Year
  Sex: Female

DRUGS (1)
  1. SUTENT [Suspect]
     Active Substance: SUNITINIB MALATE
     Indication: METASTATIC RENAL CELL CARCINOMA
     Dosage: UNK
     Dates: start: 20200208, end: 202006

REACTIONS (5)
  - Coma [Unknown]
  - Eating disorder [Unknown]
  - Cerebrovascular accident [Unknown]
  - Malaise [Unknown]
  - Ageusia [Unknown]

NARRATIVE: CASE EVENT DATE: 202006
